FAERS Safety Report 10051041 (Version 1)
Quarter: 2014Q2

REPORT INFORMATION
  Report Type: Spontaneous
  Country: IT (occurrence: DE)
  Receive Date: 20140401
  Receipt Date: 20140401
  Transmission Date: 20141212
  Serious: Yes (Life-Threatening, Hospitalization)
  Sender: FDA-Public Use
  Company Number: DE-FRI-1000065991

PATIENT
  Age: 75 Year
  Sex: Female
  Weight: 78 kg

DRUGS (6)
  1. FOSFOMYCIN [Suspect]
     Indication: URINARY TRACT INFECTION
     Route: 048
     Dates: start: 201308, end: 201308
  2. INSUMAN COMB [Concomitant]
     Indication: DIABETES MELLITUS
     Route: 058
  3. BISOLICH [Concomitant]
     Indication: HYPERTENSION
     Route: 048
  4. AMLODIPIN [Concomitant]
     Indication: HYPERTENSION
     Route: 048
  5. VESIKUR [Concomitant]
     Indication: BLADDER IRRITATION
  6. MAGNESIUM + E-VITAMIN [Concomitant]

REACTIONS (4)
  - Decreased appetite [Not Recovered/Not Resolved]
  - Weight decreased [Not Recovered/Not Resolved]
  - Fatigue [Not Recovered/Not Resolved]
  - Asthenia [Not Recovered/Not Resolved]
